FAERS Safety Report 7401770-0 (Version None)
Quarter: 2011Q2

REPORT INFORMATION
  Report Type: 
  Country: None (occurrence: None)
  Receive Date: 20110408
  Receipt Date: 20110401
  Transmission Date: 20111010
  Serious: No
  Sender: FDA-Public Use
  Company Number: US-PFIZER INC-2011073129

PATIENT
  Sex: Female
  Weight: 68 kg

DRUGS (5)
  1. FENTANYL [Interacting]
     Indication: BACK PAIN
     Dosage: 100 UG, 1PATCH EVRY 3 DAYS
     Dates: start: 20110304
  2. SOMA [Concomitant]
     Dosage: UNK
  3. XANAX [Concomitant]
     Dosage: UNK
  4. OXYCODONE [Concomitant]
     Dosage: 15 MG DAILY EVERY 6 HOURS
  5. EFFEXOR XR [Suspect]
     Indication: DEPRESSION
     Dosage: 300 MG, 1X/DAY
     Route: 048
     Dates: start: 20090301

REACTIONS (8)
  - DRUG INTERACTION [None]
  - APPLICATION SITE IRRITATION [None]
  - DRUG INEFFECTIVE [None]
  - DEPRESSED MOOD [None]
  - APPLICATION SITE VESICLES [None]
  - ANXIETY [None]
  - TREMOR [None]
  - APPLICATION SITE ERYTHEMA [None]
